FAERS Safety Report 10952837 (Version 1)
Quarter: 2015Q1

REPORT INFORMATION
  Report Type: Spontaneous
  Country: US (occurrence: None)
  Receive Date: 20150323
  Receipt Date: 20150323
  Transmission Date: 20150721
  Serious: No
  Sender: FDA-Public Use
  Company Number: VIT-2014-02592

PATIENT
  Age: 51 Year
  Sex: Female

DRUGS (3)
  1. ERGOCALCIFEROL. [Concomitant]
     Active Substance: ERGOCALCIFEROL
  2. RENVELA [Concomitant]
     Active Substance: SEVELAMER CARBONATE
  3. VELPHORO [Suspect]
     Active Substance: FERRIC OXYHYDROXIDE
     Indication: HYPERPHOSPHATAEMIA
     Dosage: 2 DOSAGE FORMS,
     Route: 048
     Dates: start: 20140627

REACTIONS (3)
  - Blood phosphorus increased [None]
  - Treatment noncompliance [None]
  - Blood parathyroid hormone increased [None]

NARRATIVE: CASE EVENT DATE: 20141205
